FAERS Safety Report 5382612-4 (Version None)
Quarter: 2007Q3

REPORT INFORMATION
  Report Type: 
  Country: None (occurrence: None)
  Receive Date: 20070702
  Receipt Date: 20070309
  Transmission Date: 20080115
  Serious: No
  Sender: FDA-Public Use
  Company Number: 2007PV031448

PATIENT
  Age: 57 Year
  Sex: Female
  Weight: 167.8309 kg

DRUGS (4)
  1. SYMLIN [Suspect]
     Indication: TYPE 2 DIABETES MELLITUS
     Dosage: 60 MCG; BID; SC, 120 MCG; BID; SC
     Route: 058
     Dates: start: 20070308, end: 20070301
  2. SYMLIN [Suspect]
     Indication: TYPE 2 DIABETES MELLITUS
     Dosage: 60 MCG; BID; SC, 120 MCG; BID; SC
     Route: 058
     Dates: start: 20070312
  3. INSULIN [Concomitant]
  4. NOVOLIN 70/30 [Concomitant]

REACTIONS (3)
  - BLOOD GLUCOSE INCREASED [None]
  - DRUG EFFECT DECREASED [None]
  - NAUSEA [None]
